FAERS Safety Report 4606199-6 (Version None)
Quarter: 2005Q1

REPORT INFORMATION
  Report Type: 
  Country: None (occurrence: None)
  Receive Date: 20050115
  Receipt Date: 20040630
  Transmission Date: 20050727
  Serious: Yes (Other)
  Sender: FDA-Public Use
  Company Number: A03200402202

PATIENT
  Age: 73 Year
  Sex: Male
  Weight: 80.7403 kg

DRUGS (4)
  1. AMBIEN [Suspect]
     Indication: SLEEP DISORDER
     Dosage: 2.5 TO 3 MG A DAY - ORAL
     Route: 048
     Dates: start: 20020101
  2. LOVASTATIN [Concomitant]
  3. LISINOPRIL [Concomitant]
  4. FLUTICASONE+SALMETEROL [Concomitant]

REACTIONS (1)
  - DEPENDENCE [None]
